FAERS Safety Report 14596064 (Version 4)
Quarter: 2020Q1

REPORT INFORMATION
  Report Type: Spontaneous
  Country: US (occurrence: US)
  Receive Date: 20180303
  Receipt Date: 20200309
  Transmission Date: 20200409
  Serious: Yes (Other)
  Sender: FDA-Public Use
  Company Number: US-GLAXOSMITHKLINE-US2018035465

PATIENT
  Sex: Female

DRUGS (1)
  1. COREG CR [Suspect]
     Active Substance: CARVEDILOL PHOSPHATE
     Indication: RESTRICTIVE CARDIOMYOPATHY
     Dosage: 20 MG, UNK
     Route: 065
     Dates: start: 2012

REACTIONS (9)
  - Dizziness [Unknown]
  - Brain neoplasm [Unknown]
  - Cardiac failure [Unknown]
  - General physical condition [Unknown]
  - Ill-defined disorder [Unknown]
  - Haemochromatosis [Unknown]
  - Balance disorder [Unknown]
  - Vertigo [Unknown]
  - Cerebral haemorrhage [Unknown]

NARRATIVE: CASE EVENT DATE: 2012
